FAERS Safety Report 4322343-2 (Version None)
Quarter: 2004Q1

REPORT INFORMATION
  Report Type: 
  Country: None (occurrence: None)
  Receive Date: 20040319
  Receipt Date: 20040303
  Transmission Date: 20041129
  Serious: Yes (Other)
  Sender: FDA-Public Use
  Company Number: 2004016901

PATIENT
  Age: 29 Year
  Sex: Male

DRUGS (2)
  1. ZELDOX [Suspect]
     Indication: SCHIZOPHRENIA
     Dosage: 120 MG (BID), ORAL
     Route: 047
     Dates: start: 20040115
  2. CLONAZEPAM [Concomitant]

REACTIONS (2)
  - TOXIC SKIN ERUPTION [None]
  - VIRAL INFECTION [None]
